FAERS Safety Report 7973967-2 (Version None)
Quarter: 2011Q4

REPORT INFORMATION
  Report Type: 
  Country: None (occurrence: None)
  Receive Date: 20111213
  Receipt Date: 20111202
  Transmission Date: 20120403
  Serious: Yes (Death, Hospitalization)
  Sender: FDA-Public Use
  Company Number: US-GLAXOSMITHKLINE-A0908601A

PATIENT
  Age: 59 Year
  Sex: Male

DRUGS (2)
  1. AVANDIA [Suspect]
     Indication: DIABETES MELLITUS
     Dosage: 4MG PER DAY
     Route: 048
     Dates: start: 20030301, end: 20040801
  2. AVANDAMET [Suspect]
     Indication: DIABETES MELLITUS
     Route: 048
     Dates: start: 20030312, end: 20040730

REACTIONS (6)
  - CARDIAC FAILURE CONGESTIVE [None]
  - RENAL FAILURE [None]
  - MULTI-ORGAN FAILURE [None]
  - HEPATIC FAILURE [None]
  - CARDIOVASCULAR DISORDER [None]
  - HYPOXIA [None]
